FAERS Safety Report 13103195 (Version 5)
Quarter: 2017Q4

REPORT INFORMATION
  Report Type: Report from Study
  Country: US (occurrence: US)
  Receive Date: 20170110
  Receipt Date: 20171027
  Transmission Date: 20180320
  Serious: Yes (Hospitalization, Other)
  Sender: FDA-Public Use
  Company Number: US-GILEAD-2017-0252402

PATIENT
  Age: 79 Year
  Sex: Male
  Weight: 92.52 kg

DRUGS (3)
  1. NITRO                              /00003201/ [Concomitant]
     Active Substance: NITROGLYCERIN
     Indication: PRODUCT USED FOR UNKNOWN INDICATION
     Route: 065
  2. RANOLAZINE. [Suspect]
     Active Substance: RANOLAZINE
     Indication: ANGINA PECTORIS
     Dosage: 1000 MG, UNK
     Route: 048
  3. RANOLAZINE. [Suspect]
     Active Substance: RANOLAZINE
     Dosage: 500 MG, UNK
     Route: 048

REACTIONS (8)
  - Anaemia [Unknown]
  - Asthenia [Unknown]
  - Intentional dose omission [Not Recovered/Not Resolved]
  - Gait disturbance [Unknown]
  - Chest pain [Not Recovered/Not Resolved]
  - Lung carcinoma cell type unspecified stage II [Not Recovered/Not Resolved]
  - Aphasia [Unknown]
  - Wrong technique in product usage process [Not Recovered/Not Resolved]

NARRATIVE: CASE EVENT DATE: 20161219
